FAERS Safety Report 7411455-2 (Version None)
Quarter: 2011Q2

REPORT INFORMATION
  Report Type: 
  Country: None (occurrence: None)
  Receive Date: 20110413
  Receipt Date: 20110407
  Transmission Date: 20111010
  Serious: Yes (Death)
  Sender: FDA-Public Use
  Company Number: PHHY2011CA27725

PATIENT
  Sex: Male

DRUGS (4)
  1. ATENOLOL [Concomitant]
  2. CLOZARIL [Suspect]
     Dosage: 75 MG, BID
     Dates: start: 20030411
  3. SYNTHROID [Concomitant]
  4. SINTAK [Concomitant]

REACTIONS (1)
  - NEOPLASM MALIGNANT [None]
